FAERS Safety Report 6878477-1 (Version None)
Quarter: 2010Q3

REPORT INFORMATION
  Report Type: 
  Country: None (occurrence: None)
  Receive Date: 20100728
  Receipt Date: 20100719
  Transmission Date: 20110219
  Serious: Yes (Hospitalization)
  Sender: FDA-Public Use
  Company Number: US-MERCK-1007USA02096

PATIENT
  Age: 46 Year
  Sex: Male

DRUGS (4)
  1. ZOCOR [Suspect]
     Indication: BLOOD CHOLESTEROL INCREASED
     Route: 048
     Dates: start: 20050101
  2. ZOCOR [Suspect]
     Route: 048
  3. PLAVIX [Concomitant]
     Route: 065
  4. VYTORIN [Concomitant]
     Route: 048
     Dates: start: 20050101, end: 20080101

REACTIONS (3)
  - BLOOD CHOLESTEROL INCREASED [None]
  - DRUG INEFFECTIVE [None]
  - RENAL DISORDER [None]
